FAERS Safety Report 4601608-0 (Version None)
Quarter: 2005Q1

REPORT INFORMATION
  Report Type: 
  Country: None (occurrence: None)
  Receive Date: 20050131
  Receipt Date: 20041029
  Transmission Date: 20050727
  Serious: No
  Sender: FDA-Public Use
  Company Number: 200418268US

PATIENT
  Age: 48 Year
  Sex: Female
  Weight: 104.5 kg

DRUGS (7)
  1. TELITHROMYCIN (KETEK) TABLETS [Suspect]
     Indication: BRONCHITIS
     Dosage: 800 MG QD PO
     Route: 048
     Dates: start: 20040901, end: 20040901
  2. TELITHROMYCIN (KETEK) TABLETS [Suspect]
     Indication: PHARYNGOLARYNGEAL PAIN
     Dosage: 800 MG QD PO
     Route: 048
     Dates: start: 20040901, end: 20040901
  3. TELITHROMYCIN (KETEK) TABLETS [Suspect]
     Indication: UPPER RESPIRATORY TRACT INFECTION
     Dosage: 800 MG QD PO
     Route: 048
     Dates: start: 20040901, end: 20040901
  4. BEXTRA [Concomitant]
  5. PARACETAMOL [Concomitant]
  6. TRAMADOL HYDROCHLORIDE (ULTRACET) [Concomitant]
  7. LEVAQUIN [Concomitant]

REACTIONS (6)
  - ASTHENIA [None]
  - DRUG INEFFECTIVE [None]
  - HYPOAESTHESIA [None]
  - INTERVERTEBRAL DISC DISORDER [None]
  - PAIN [None]
  - PARAESTHESIA [None]
